FAERS Safety Report 23588385 (Version 2)
Quarter: 2024Q2

REPORT INFORMATION
  Report Type: Spontaneous
  Country: US (occurrence: US)
  Receive Date: 20240302
  Receipt Date: 20240509
  Transmission Date: 20240716
  Serious: No
  Sender: FDA-Public Use
  Company Number: US-JNJFOC-20240275583

PATIENT
  Age: 8 Year
  Sex: Female

DRUGS (2)
  1. TYLENOL 8HR [Suspect]
     Active Substance: ACETAMINOPHEN
     Indication: Migraine
     Dosage: ALMOST EVERY DAY
     Route: 064
     Dates: start: 200409, end: 200502
  2. FOLIC ACID [Concomitant]
     Active Substance: FOLIC ACID
     Indication: Unevaluable event
     Route: 064
     Dates: start: 200409, end: 200502

REACTIONS (2)
  - Foetal exposure during pregnancy [Unknown]
  - Attention deficit hyperactivity disorder [Unknown]

NARRATIVE: CASE EVENT DATE: 20131001
